FAERS Safety Report 18158394 (Version 1)
Quarter: 2020Q3

REPORT INFORMATION
  Report Type: Spontaneous
  Country: US (occurrence: US)
  Receive Date: 20200817
  Receipt Date: 20200817
  Transmission Date: 20201103
  Serious: No
  Sender: FDA-Public Use
  Company Number: US-MYLANLABS-2020M1071147

PATIENT
  Sex: Female
  Weight: 57 kg

DRUGS (2)
  1. ESTRADIOL VAGINAL CREAM USP [Suspect]
     Active Substance: ESTRADIOL
     Indication: VULVOVAGINAL DRYNESS
     Dosage: 1 GRAM, BIWEEKLY (TWICE A WEEK)
     Route: 067
  2. YUVAFEM [Concomitant]
     Active Substance: ESTRADIOL HEMIHYDRATE
     Dosage: UNK UNK, BIWEEKLY
     Route: 067

REACTIONS (2)
  - Product quality issue [Unknown]
  - Incorrect dose administered [Not Recovered/Not Resolved]
